FAERS Safety Report 12072229 (Version 14)
Quarter: 2016Q4

REPORT INFORMATION
  Report Type: Report from Study
  Country: US (occurrence: US)
  Receive Date: 20160212
  Receipt Date: 20161226
  Transmission Date: 20170206
  Serious: Yes (Hospitalization, Other)
  Sender: FDA-Public Use
  Company Number: PHHO2015US016395

PATIENT
  Age: 77 Year
  Sex: Male
  Weight: 77.3 kg

DRUGS (9)
  1. TRAMETINIB [Suspect]
     Active Substance: TRAMETINIB
     Dosage: NO TREATMENT
     Route: 048
     Dates: start: 20160703, end: 20160716
  2. DABRAFENIB [Suspect]
     Active Substance: DABRAFENIB
     Indication: HAIRY CELL LEUKAEMIA
     Dosage: 150 MG, BID
     Route: 048
     Dates: start: 20141211, end: 20160701
  3. ANESTHETICS, GENERAL [Concomitant]
     Active Substance: UNSPECIFIED INGREDIENT
     Indication: MASS EXCISION
     Dosage: UNK
     Route: 042
     Dates: start: 20160522, end: 20160522
  4. DABRAFENIB [Suspect]
     Active Substance: DABRAFENIB
     Dosage: NO TREATMENT
     Route: 065
     Dates: start: 20160703, end: 20160716
  5. DABRAFENIB [Suspect]
     Active Substance: DABRAFENIB
     Dosage: 150 MG, UNK
     Route: 048
     Dates: start: 20150702, end: 20160702
  6. TRAMETINIB [Suspect]
     Active Substance: TRAMETINIB
     Dosage: 2 MG, QD
     Route: 048
     Dates: start: 20150717, end: 20160203
  7. TRAMETINIB [Suspect]
     Active Substance: TRAMETINIB
     Indication: HAIRY CELL LEUKAEMIA
     Dosage: 2 MG, QD
     Route: 048
     Dates: start: 20141211, end: 20160702
  8. DABRAFENIB [Suspect]
     Active Substance: DABRAFENIB
     Dosage: 200 MG, UNK
     Route: 048
     Dates: start: 20150717, end: 20160203
  9. ANTIBIOTICS [Concomitant]
     Active Substance: UNSPECIFIED INGREDIENT
     Indication: MASS EXCISION
     Dosage: UNK
     Route: 042
     Dates: start: 20160522, end: 20160522

REACTIONS (15)
  - Squamous cell carcinoma of skin [Recovered/Resolved]
  - Squamous cell carcinoma of skin [Recovered/Resolved]
  - Squamous cell carcinoma of skin [Recovered/Resolved]
  - Squamous cell carcinoma of skin [Recovered/Resolved]
  - Squamous cell carcinoma of head and neck [Recovered/Resolved]
  - Squamous cell carcinoma of skin [Recovered/Resolved]
  - Squamous cell carcinoma of skin [Recovered/Resolved]
  - Squamous cell carcinoma of skin [Recovered/Resolved]
  - Fat necrosis [Recovered/Resolved]
  - Fat necrosis [Recovered/Resolved]
  - Squamous cell carcinoma of skin [Recovered/Resolved]
  - Fat necrosis [Recovered/Resolved]
  - Second primary malignancy [Recovered/Resolved]
  - Squamous cell carcinoma of skin [Recovered/Resolved]
  - Squamous cell carcinoma of skin [Recovered/Resolved]

NARRATIVE: CASE EVENT DATE: 20150215
